FAERS Safety Report 8049799-6 (Version None)
Quarter: 2012Q1

REPORT INFORMATION
  Report Type: 
  Country: None (occurrence: None)
  Receive Date: 20120117
  Receipt Date: 20120112
  Transmission Date: 20120608
  Serious: Yes (Death, Hospitalization)
  Sender: FDA-Public Use
  Company Number: TN-SANOFI-AVENTIS-2012SA002511

PATIENT
  Age: 42 Year
  Sex: Male

DRUGS (7)
  1. ATORVASTATIN CALCIUM [Concomitant]
     Dates: end: 20110914
  2. INSULIN [Concomitant]
     Dates: end: 20110914
  3. ASPEGIC 325 [Concomitant]
     Dates: end: 20110914
  4. CORVASAL [Concomitant]
     Dates: end: 20110914
  5. PLAVIX [Suspect]
     Indication: MYOCARDIAL INFARCTION
     Route: 048
     Dates: start: 20110207, end: 20110914
  6. VESSEL DUE [Concomitant]
     Dates: end: 20110914
  7. VASTAREL ^BIOPHARMA^ [Concomitant]
     Dates: end: 20110914

REACTIONS (2)
  - DIABETES MELLITUS INADEQUATE CONTROL [None]
  - CARDIAC ARREST [None]
